FAERS Safety Report 8300375-7 (Version None)
Quarter: 2012Q2

REPORT INFORMATION
  Report Type: 
  Country: None (occurrence: None)
  Receive Date: 20120417
  Receipt Date: 20120413
  Transmission Date: 20120825
  Serious: Yes (Other)
  Sender: FDA-Public Use
  Company Number: ADR-2011-10845

PATIENT
  Sex: Female

DRUGS (1)
  1. LIORESAL [Suspect]
     Indication: MUSCLE SPASTICITY
     Dosage: 1307.3 MCG, DAILY, INTR
     Route: 037

REACTIONS (2)
  - DEVICE CONNECTION ISSUE [None]
  - POCKET EROSION [None]
